FAERS Safety Report 4621277-3 (Version None)
Quarter: 2005Q1

REPORT INFORMATION
  Report Type: 
  Country: None (occurrence: None)
  Receive Date: 20050329
  Receipt Date: 20050218
  Transmission Date: 20050727
  Serious: Yes (Hospitalization)
  Sender: FDA-Public Use
  Company Number: US-JNJFOC-20050205043

PATIENT
  Sex: Male

DRUGS (3)
  1. DURAGESIC-100 [Suspect]
     Route: 062
  2. SOMA [Concomitant]
     Route: 049
  3. VALIUM [Concomitant]
     Indication: ANXIETY
     Route: 049

REACTIONS (2)
  - ADVERSE EVENT [None]
  - OVERDOSE [None]
